FAERS Safety Report 5168240-4 (Version None)
Quarter: 2006Q4

REPORT INFORMATION
  Report Type: 
  Country: None (occurrence: None)
  Receive Date: 20061208
  Receipt Date: 20061127
  Transmission Date: 20070319
  Serious: Yes (Other)
  Sender: FDA-Public Use
  Company Number: FR-GLAXOSMITHKLINE-B0449488B

PATIENT
  Age: 19 Year
  Sex: Male

DRUGS (3)
  1. SALBUMOL [Suspect]
     Dates: start: 19741101, end: 19750101
  2. LITHIUM CARBONATE [Suspect]
     Indication: BIPOLAR DISORDER
     Route: 048
  3. UNKNOWN MEDICATION [Concomitant]

REACTIONS (5)
  - AUTOIMMUNE THYROIDITIS [None]
  - BIPOLAR DISORDER [None]
  - DEPRESSION [None]
  - DRUG EXPOSURE DURING PREGNANCY [None]
  - MANIA [None]
